FAERS Safety Report 22245605 (Version 1)
Quarter: 2023Q2

REPORT INFORMATION
  Report Type: Report from Study
  Country: GB (occurrence: GB)
  Receive Date: 20230424
  Receipt Date: 20230424
  Transmission Date: 20230721
  Serious: Yes (Hospitalization, Other)
  Sender: FDA-Public Use
  Company Number: GB-TAKEDA-2023TUS016661

PATIENT
  Sex: Female

DRUGS (1)
  1. VEDOLIZUMAB [Suspect]
     Active Substance: VEDOLIZUMAB
     Indication: Colitis ulcerative
     Dosage: 108 MILLIGRAM
     Route: 058
     Dates: start: 202212, end: 202304

REACTIONS (6)
  - Infusion related hypersensitivity reaction [Unknown]
  - Pelvic fracture [Unknown]
  - Fall [Unknown]
  - Decubitus ulcer [Unknown]
  - Skin burning sensation [Unknown]
  - Erythema [Unknown]
